FAERS Safety Report 21800491 (Version 1)
Quarter: 2022Q4

REPORT INFORMATION
  Report Type: Spontaneous
  Country: US (occurrence: None)
  Receive Date: 20221229
  Receipt Date: 20221229
  Transmission Date: 20230112
  Serious: Yes (Death, Hospitalization)
  Sender: FDA-Public Use
  Company Number: None

PATIENT
  Age: 79 Year
  Sex: Male
  Weight: 112.5 kg

DRUGS (3)
  1. DULCOLAX NOS [Suspect]
     Active Substance: BISACODYL OR DOCUSATE SODIUM
     Indication: Constipation
     Dosage: OTHER QUANTITY : 2 OUNCE(S);?OTHER FREQUENCY : ONCE;?
     Route: 048
  2. DEVICE\INSULIN NOS [Concomitant]
     Active Substance: DEVICE\INSULIN NOS
  3. FISH OIL [Concomitant]
     Active Substance: FISH OIL

REACTIONS (8)
  - Diarrhoea [None]
  - Septic shock [None]
  - Hepatic failure [None]
  - Cardiac failure [None]
  - Renal failure [None]
  - Encephalopathy [None]
  - Hypoxia [None]
  - Suspected product contamination [None]

NARRATIVE: CASE EVENT DATE: 20220905
